FAERS Safety Report 6692371-0 (Version None)
Quarter: 2010Q2

REPORT INFORMATION
  Report Type: 
  Country: None (occurrence: None)
  Receive Date: 20100419
  Receipt Date: 20100409
  Transmission Date: 20101027
  Serious: Yes (Life-Threatening)
  Sender: FDA-Public Use
  Company Number: CV20100181

PATIENT
  Age: 64 Year
  Sex: Female

DRUGS (7)
  1. ONDANSETRON [Suspect]
     Dosage: 8 MG
     Route: 042
     Dates: start: 20100219
  2. CARBOPLATIN [Concomitant]
  3. GEMCITABINE [Concomitant]
  4. METOCLOPRAMIDE (METOCLOPRAMIDE) (METOCLOPRAMIDE) [Concomitant]
  5. DEXAMETHASONE [Concomitant]
  6. IBUPROFEN [Concomitant]
  7. PARACETAMOL (PARAVCETAMOL) (PARACETAMIL) [Concomitant]

REACTIONS (2)
  - HEPATITIS [None]
  - MALAISE [None]
